FAERS Safety Report 8508663-6 (Version None)
Quarter: 2012Q3

REPORT INFORMATION
  Report Type: 
  Country: None (occurrence: None)
  Receive Date: 20120713
  Receipt Date: 20120710
  Transmission Date: 20120928
  Serious: Yes (Hospitalization)
  Sender: FDA-Public Use
  Company Number: BR-PFIZER INC-2012166230

PATIENT
  Age: 46 Year
  Sex: Female

DRUGS (7)
  1. ALPRAZOLAM [Suspect]
     Indication: ANXIETY
     Dosage: 3 MG, 1X/DAY (1 AND A HALF TABLET STRENGTH 2MG 1X/DAY)
     Route: 048
     Dates: start: 20100101
  2. BROMAZEPAM [Concomitant]
     Indication: ANXIETY
     Dosage: UNK
     Dates: start: 20020101
  3. PRISTIQ [Concomitant]
     Indication: ANXIETY
     Dosage: UNK
     Dates: start: 20110801
  4. ALPRAZOLAM [Suspect]
     Indication: DEPRESSION
  5. PRISTIQ [Concomitant]
     Indication: DEPRESSION
  6. ALPRAZOLAM [Suspect]
     Dosage: UNK
  7. BROMAZEPAM [Concomitant]
     Indication: DEPRESSION

REACTIONS (7)
  - ANXIETY [None]
  - HEADACHE [None]
  - DRUG INEFFECTIVE [None]
  - AGITATION [None]
  - TENSION [None]
  - REPRODUCTIVE TRACT DISORDER [None]
  - VOMITING [None]
